FAERS Safety Report 19377677 (Version 1)
Quarter: 2021Q2

REPORT INFORMATION
  Report Type: Spontaneous
  Country: CA (occurrence: CA)
  Receive Date: 20210605
  Receipt Date: 20210605
  Transmission Date: 20210717
  Serious: Yes (Other)
  Sender: FDA-Public Use
  Company Number: CA-GYP-000035

PATIENT
  Age: 58 Year

DRUGS (5)
  1. BENRALIZUMAB. [Concomitant]
     Active Substance: BENRALIZUMAB
     Indication: HYPER IGE SYNDROME
     Route: 058
  2. PREDNISONE. [Suspect]
     Active Substance: PREDNISONE
     Indication: ASTHMA
     Route: 065
  3. IMMUNOGLOBULINS NOS [Concomitant]
     Active Substance: IMMUNE GLOBULIN NOS
     Indication: ASTHMA
     Dosage: 0.6 G/KG EVERY 4 WEEKS IV
     Route: 042
  4. PREDNISONE. [Suspect]
     Active Substance: PREDNISONE
     Indication: ASTHMA
     Route: 065
  5. BENRALIZUMAB. [Concomitant]
     Active Substance: BENRALIZUMAB
     Indication: HYPER IGE SYNDROME
     Route: 058

REACTIONS (1)
  - Drug dependence [Unknown]
